FAERS Safety Report 9542506 (Version 2)
Quarter: 2013Q3

REPORT INFORMATION
  Report Type: Report from Study
  Country: US (occurrence: US)
  Receive Date: 20130923
  Receipt Date: 20130923
  Transmission Date: 20140515
  Serious: Yes (Other)
  Sender: FDA-Public Use
  Company Number: US-SANOFI-AVENTIS-2013SA077237

PATIENT
  Sex: Male
  Weight: 56.7 kg

DRUGS (9)
  1. AUBAGIO [Suspect]
     Indication: MULTIPLE SCLEROSIS
     Route: 048
     Dates: start: 20130714, end: 20130828
  2. KLONOPIN [Concomitant]
  3. PROPRANOLOL [Concomitant]
     Indication: TREMOR
     Route: 065
  4. CLONAZEPAM [Concomitant]
     Indication: ANXIETY
     Dosage: 1 YEAR AGO
     Route: 065
  5. CLONAZEPAM [Concomitant]
     Indication: BLOOD PRESSURE
     Dosage: 1 YEAR AGO
     Route: 065
  6. BACLOFEN [Concomitant]
     Indication: MUSCLE SPASMS
     Dosage: 4 YEARS AGO
     Route: 065
  7. OMEPRAZOLE [Concomitant]
     Indication: GASTROOESOPHAGEAL REFLUX DISEASE
     Dosage: 3 YEARS AGO
     Route: 065
  8. LOSARTAN [Concomitant]
     Indication: BLOOD PRESSURE
     Dosage: 1 YEAR AGO
     Route: 065
  9. AMPYRA [Concomitant]
     Dosage: USED FOR LEG STRENGTH SINCE 1 YEAR
     Route: 065

REACTIONS (8)
  - Panic attack [Recovering/Resolving]
  - Heart rate increased [Recovering/Resolving]
  - Dyspnoea [Recovering/Resolving]
  - Blood pressure increased [Recovering/Resolving]
  - Asthenia [Not Recovered/Not Resolved]
  - Gastrointestinal sounds abnormal [Not Recovered/Not Resolved]
  - Hypoaesthesia [Not Recovered/Not Resolved]
  - Nausea [Unknown]
